FAERS Safety Report 5902493-7 (Version None)
Quarter: 2008Q3

REPORT INFORMATION
  Report Type: 
  Country: None (occurrence: None)
  Receive Date: 20080929
  Receipt Date: 20080915
  Transmission Date: 20090109
  Serious: Yes (Other)
  Sender: FDA-Public Use
  Company Number: TH-GENENTECH-268670

PATIENT

DRUGS (2)
  1. BEVACIZUMAB [Suspect]
     Indication: GLAUCOMA
     Dosage: 1.25 MG, UNK
     Route: 031
  2. BEVACIZUMAB [Suspect]
     Indication: VITREOUS HAEMORRHAGE

REACTIONS (2)
  - HYPHAEMA [None]
  - VITREOUS HAEMORRHAGE [None]
